FAERS Safety Report 23674247 (Version 1)
Quarter: 2024Q1

REPORT INFORMATION
  Report Type: Spontaneous
  Country: TR (occurrence: TR)
  Receive Date: 20240326
  Receipt Date: 20240326
  Transmission Date: 20240409
  Serious: Yes (Hospitalization, Other)
  Sender: FDA-Public Use
  Company Number: TR-ABBVIE-5692168

PATIENT
  Age: 56 Year

DRUGS (5)
  1. OZURDEX [Suspect]
     Active Substance: DEXAMETHASONE
     Indication: Product used for unknown indication
     Dosage: TIME INTERVAL: AS NECESSARY: FOURTH IMPLANT TO RIGHT AND LEFT SIDE
     Route: 050
  2. OZURDEX [Suspect]
     Active Substance: DEXAMETHASONE
     Dosage: TIME INTERVAL: AS NECESSARY: FIRST IMPLANT TO RIGHT SIDE OF EYE
     Route: 050
  3. OZURDEX [Suspect]
     Active Substance: DEXAMETHASONE
     Dosage: TIME INTERVAL: AS NECESSARY: SECOND IMPLANT TO RIGHT AND LEFT SIDE
     Route: 050
  4. OZURDEX [Suspect]
     Active Substance: DEXAMETHASONE
     Dosage: TIME INTERVAL: AS NECESSARY: FIRST IMPLANT TO LEFT SIDE OF EYE
     Route: 050
  5. OZURDEX [Suspect]
     Active Substance: DEXAMETHASONE
     Dosage: TIME INTERVAL: AS NECESSARY: THIRD IMPLANT TO RIGHT AND LEFT SIDE.
     Route: 050

REACTIONS (3)
  - Bundle branch block [Unknown]
  - Cataract subcapsular [Unknown]
  - Chest pain [Unknown]
